FAERS Safety Report 21381687 (Version 6)
Quarter: 2024Q1

REPORT INFORMATION
  Report Type: Report from Study
  Country: US (occurrence: US)
  Receive Date: 20220927
  Receipt Date: 20240205
  Transmission Date: 20240409
  Serious: Yes (Hospitalization)
  Sender: FDA-Public Use
  Company Number: US-GBT-016557

PATIENT
  Age: 23 Year
  Sex: Male

DRUGS (16)
  1. OXBRYTA [Suspect]
     Active Substance: VOXELOTOR
     Indication: Sickle cell disease
     Dosage: 1500 MG, 1X/DAY
     Dates: start: 20220408
  2. VITAMIN D3 [Concomitant]
     Active Substance: CHOLECALCIFEROL
     Indication: Product used for unknown indication
     Dosage: 2 DF, 1X/DAY(25 MCG (1,000 UNIT) TABLET)
     Route: 048
     Dates: start: 20220708
  3. FLEXERIL [Concomitant]
     Active Substance: CYCLOBENZAPRINE HYDROCHLORIDE
     Indication: Sickle cell disease
     Dosage: 5 MG, 3X/DAY
     Route: 048
     Dates: start: 20220613, end: 20220713
  4. LISINOPRIL [Concomitant]
     Active Substance: LISINOPRIL
     Indication: Product used for unknown indication
     Dosage: 10 MG, 1X/DAY
     Route: 048
     Dates: start: 20220401
  5. FOLVITE [Concomitant]
     Active Substance: FOLIC ACID
     Indication: Sickle cell disease
     Dosage: 1 MG, 1X/DAY
     Route: 048
     Dates: start: 20121214
  6. HYDROXYUREA [Concomitant]
     Active Substance: HYDROXYUREA
     Indication: Sickle cell disease
     Dosage: 500 MG, 1X/DAY
     Route: 048
     Dates: start: 20170719
  7. DRISDOL [Concomitant]
     Active Substance: ERGOCALCIFEROL
     Indication: Product used for unknown indication
     Dosage: 1 G(1,250 MCG (50,000 UNIT) CAPSULE)
     Route: 048
     Dates: start: 20150917, end: 20220728
  8. MOTRIN [Concomitant]
     Active Substance: IBUPROFEN
     Indication: Sickle cell disease
     Dosage: 600 MG
     Route: 048
     Dates: start: 20200402
  9. SENNA PLUS [Concomitant]
     Active Substance: DOCUSATE SODIUM\SENNOSIDES\SENNOSIDES A AND B
     Indication: Constipation
     Dosage: 8.6-50 MG TABLET
     Route: 048
     Dates: start: 20210423
  10. PEPCID [Concomitant]
     Active Substance: FAMOTIDINE
     Indication: Sickle cell disease
     Dosage: 20 MG, 2X/DAY
     Route: 048
     Dates: start: 20220728
  11. ZOLOFT [Concomitant]
     Active Substance: SERTRALINE HYDROCHLORIDE
     Indication: Anxiety
     Dosage: QD
     Route: 048
     Dates: start: 20200909
  12. MS CONTIN [Concomitant]
     Active Substance: MORPHINE SULFATE
     Indication: Sickle cell disease
     Dosage: 60 MG, 21X/DAY(60 MG 12 EXTENDED RELEASE TABLET )
     Route: 048
     Dates: start: 20220522
  13. ROXICODONE [Concomitant]
     Active Substance: OXYCODONE HYDROCHLORIDE
     Indication: Sickle cell disease
     Dosage: 15 MG IMMEDIATE RELEASE TABLET
     Route: 048
     Dates: start: 20200923
  14. ADAKVEO [Concomitant]
     Active Substance: CRIZANLIZUMAB-TMCA
     Indication: Sickle cell disease
     Dosage: IN NACL 0.9% 100 ML INFUSION
     Route: 042
     Dates: start: 20211217
  15. AMOXIL [Concomitant]
     Active Substance: AMOXICILLIN
     Indication: Prophylaxis
     Dosage: 250 MG, 2X/DAY
     Route: 048
     Dates: start: 20190322
  16. NEURONTIN [Concomitant]
     Active Substance: GABAPENTIN
     Dosage: 300 MG, 1X/DAY
     Route: 048
     Dates: start: 20220215, end: 20220613

REACTIONS (1)
  - Sickle cell anaemia with crisis [Recovered/Resolved]

NARRATIVE: CASE EVENT DATE: 20220718
